FAERS Safety Report 24170697 (Version 1)
Quarter: 2024Q3

REPORT INFORMATION
  Report Type: Spontaneous
  Country: US (occurrence: None)
  Receive Date: 20240803
  Receipt Date: 20240803
  Transmission Date: 20241016
  Serious: Yes (Hospitalization)
  Sender: Public
  Company Number: None

PATIENT
  Sex: Female
  Weight: 81.2 kg

DRUGS (2)
  1. CARBOPLATIN [Suspect]
     Active Substance: CARBOPLATIN
  2. ALIMTA [Concomitant]
     Active Substance: PEMETREXED DISODIUM

REACTIONS (12)
  - White blood cell count decreased [None]
  - Neutrophil count decreased [None]
  - Delirium [None]
  - Confusional state [None]
  - Somnolence [None]
  - Asthenia [None]
  - Dysarthria [None]
  - Amnesia [None]
  - Blood creatinine increased [None]
  - Hypophagia [None]
  - Prerenal failure [None]
  - Drug level increased [None]

NARRATIVE: CASE EVENT DATE: 20240611
